FAERS Safety Report 13237253 (Version 6)
Quarter: 2019Q1

REPORT INFORMATION
  Report Type: Spontaneous
  Country: US (occurrence: US)
  Receive Date: 20170215
  Receipt Date: 20190301
  Transmission Date: 20190417
  Serious: Yes (Hospitalization)
  Sender: FDA-Public Use
  Company Number: US-ACTELION-A-NJ2017-149326

PATIENT
  Age: 57 Year
  Sex: Female

DRUGS (9)
  1. ABILIFY [Concomitant]
     Active Substance: ARIPIPRAZOLE
  2. CELEBREX [Concomitant]
     Active Substance: CELECOXIB
  3. FUROSEMIDE. [Concomitant]
     Active Substance: FUROSEMIDE
  4. OPSUMIT [Suspect]
     Active Substance: MACITENTAN
     Indication: PULMONARY ARTERIAL HYPERTENSION
     Dosage: 10 MG, QD
     Route: 048
     Dates: start: 20140912
  5. UPTRAVI [Suspect]
     Active Substance: SELEXIPAG
     Indication: PULMONARY ARTERIAL HYPERTENSION
     Dosage: 1200 MCG, BID
     Route: 048
     Dates: start: 20161012
  6. CELLCEPT [Concomitant]
     Active Substance: MYCOPHENOLATE MOFETIL\MYCOPHENOLATE MOFETIL HYDROCHLORIDE
     Dosage: UNK, TID
     Route: 048
  7. OMEPRAZOLE. [Concomitant]
     Active Substance: OMEPRAZOLE
  8. POTASSIUM [Concomitant]
     Active Substance: POTASSIUM
  9. REVATIO [Concomitant]
     Active Substance: SILDENAFIL CITRATE
     Dosage: 2 TABLETS, TID
     Route: 048

REACTIONS (7)
  - Catheterisation cardiac [Unknown]
  - Abdominal discomfort [Not Recovered/Not Resolved]
  - Myalgia [Not Recovered/Not Resolved]
  - Nasopharyngitis [Unknown]
  - Nausea [Unknown]
  - Sputum discoloured [Unknown]
  - Therapy change [Unknown]

NARRATIVE: CASE EVENT DATE: 20170102
